FAERS Safety Report 8513812-X (Version None)
Quarter: 2012Q3

REPORT INFORMATION
  Report Type: 
  Country: None (occurrence: None)
  Receive Date: 20120717
  Receipt Date: 20120713
  Transmission Date: 20120928
  Serious: Yes (Death)
  Sender: FDA-Public Use
  Company Number: JP-MILLENNIUM PHARMACEUTICALS, INC.-2012-04924

PATIENT

DRUGS (3)
  1. PREDNISOLONE [Concomitant]
  2. MELPHALAN HYDROCHLORIDE [Concomitant]
     Route: 048
  3. VELCADE [Suspect]
     Indication: PRODUCT USED FOR UNKNOWN INDICATION
     Route: 042

REACTIONS (1)
  - DEATH [None]
